FAERS Safety Report 10517803 (Version 4)
Quarter: 2016Q1

REPORT INFORMATION
  Report Type: Report from Study
  Country: US (occurrence: US)
  Receive Date: 20141015
  Receipt Date: 20160118
  Transmission Date: 20160525
  Serious: Yes (Hospitalization, Other)
  Sender: FDA-Public Use
  Company Number: US-AMGEN-USASP2014078460

PATIENT
  Age: 47 Year
  Sex: Female

DRUGS (1)
  1. ENBREL [Suspect]
     Active Substance: ETANERCEPT
     Indication: PSORIASIS
     Dosage: 50 MG, QWK
     Route: 065

REACTIONS (7)
  - Psoriasis [Not Recovered/Not Resolved]
  - Bed rest [Not Recovered/Not Resolved]
  - Depression [Not Recovered/Not Resolved]
  - Decreased appetite [Unknown]
  - Asthenia [Not Recovered/Not Resolved]
  - Skin haemorrhage [Not Recovered/Not Resolved]
  - Back pain [Not Recovered/Not Resolved]

NARRATIVE: CASE EVENT DATE: 2014
